FAERS Safety Report 18217770 (Version 1)
Quarter: 2020Q3

REPORT INFORMATION
  Report Type: Spontaneous
  Country: US (occurrence: US)
  Receive Date: 20200831
  Receipt Date: 20200831
  Transmission Date: 20201103
  Serious: No
  Sender: FDA-Public Use
  Company Number: None

PATIENT
  Age: 54 Year
  Sex: Male

DRUGS (1)
  1. PREGABALIN (PREGABALIN 50MG CAP, ORAL) [Suspect]
     Active Substance: PREGABALIN
     Indication: PAIN
     Dosage: ?          OTHER FREQUENCY:PM;?
     Route: 048
     Dates: start: 20180622, end: 20181009

REACTIONS (1)
  - Dizziness [None]

NARRATIVE: CASE EVENT DATE: 20181009
